FAERS Safety Report 9233245 (Version 1)
Quarter: 2013Q2

REPORT INFORMATION
  Report Type: Spontaneous
  Country: US (occurrence: US)
  Receive Date: 20130416
  Receipt Date: 20130416
  Transmission Date: 20140414
  Serious: Yes (Other)
  Sender: FDA-Public Use
  Company Number: US-BANPHARM-20130547

PATIENT
  Age: 43 Year
  Sex: Female
  Weight: 52.16 kg

DRUGS (10)
  1. ALEVE LIQUID GELS 220MG [Suspect]
     Indication: BACK PAIN
     Dosage: 2 DF, ONCE,
     Route: 048
     Dates: start: 20130109, end: 20130109
  2. MULTI VITAMIN [Concomitant]
  3. CALCIUM TABLET [Concomitant]
  4. VITAMIN C [Concomitant]
  5. OMEGA 3 TABLET [Concomitant]
  6. VITAMIN D [Concomitant]
  7. PROBIOTIC [Concomitant]
  8. ZYRTEC [Concomitant]
  9. PROVENTIL INHALER [Concomitant]
  10. ACIPHEX [Concomitant]

REACTIONS (5)
  - Swelling face [Recovering/Resolving]
  - Burning sensation [Recovering/Resolving]
  - Rash [Recovering/Resolving]
  - Paraesthesia oral [Not Recovered/Not Resolved]
  - Eye pruritus [Recovered/Resolved]
